FAERS Safety Report 4485825-9 (Version None)
Quarter: 2004Q3

REPORT INFORMATION
  Report Type: 
  Country: None (occurrence: None)
  Receive Date: 20040921
  Receipt Date: 20031028
  Transmission Date: 20050211
  Serious: Yes (Hospitalization)
  Sender: FDA-Public Use
  Company Number: 163-20785-03100693

PATIENT
  Age: 67 Year
  Sex: Male
  Weight: 81.5 kg

DRUGS (10)
  1. THALOMID [Suspect]
     Indication: GLIOBLASTOMA MULTIFORME
     Dosage: 200 MG, 100 MG, DAILY, ORAL
     Route: 048
     Dates: start: 20030925, end: 20031008
  2. THALOMID [Suspect]
     Indication: GLIOBLASTOMA MULTIFORME
     Dosage: 200 MG, 100 MG, DAILY, ORAL
     Route: 048
     Dates: start: 20031009
  3. CPT-11 (IRINOTECAN) [Suspect]
     Indication: GLIOBLASTOMA MULTIFORME
     Dosage: 350 MG/M2, Q3WK, INTRAVENOUS
     Route: 042
     Dates: start: 20030925
  4. VALIUM [Concomitant]
  5. BACTRIM DS (BACTRIM) (TABLETS) [Concomitant]
  6. DECADRON [Concomitant]
  7. LASIX [Concomitant]
  8. ZOFRAN (ONDASETRON HYDROCHLORIDE) [Concomitant]
  9. LOPRESSOR [Concomitant]
  10. PEPCID [Concomitant]

REACTIONS (5)
  - ABDOMINAL PAIN [None]
  - ATELECTASIS [None]
  - DIVERTICULITIS [None]
  - HEPATIC LESION [None]
  - RENAL CYST [None]
